FAERS Safety Report 6489092-6 (Version None)
Quarter: 2009Q4

REPORT INFORMATION
  Report Type: 
  Country: None (occurrence: None)
  Receive Date: 20091210
  Receipt Date: 20091203
  Transmission Date: 20100525
  Serious: Yes (Death, Other)
  Sender: FDA-Public Use
  Company Number: JP-ELI_LILLY_AND_COMPANY-JP200909001783

PATIENT
  Sex: Female
  Weight: 41 kg

DRUGS (10)
  1. ALIMTA [Suspect]
     Indication: LUNG ADENOCARCINOMA RECURRENT
     Dosage: 660 MG, OTHER
     Route: 042
     Dates: start: 20090811, end: 20090811
  2. CARBOPLATIN [Concomitant]
     Indication: LUNG ADENOCARCINOMA RECURRENT
     Dosage: 520 MG, OTHER
     Route: 042
     Dates: start: 20090811, end: 20090811
  3. FOLIAMIN [Concomitant]
     Dosage: 1 G, DAILY (1/D)
     Route: 048
     Dates: start: 20090730, end: 20090822
  4. METHYCOBAL [Concomitant]
     Dosage: 500 UG, UNK
     Route: 030
     Dates: start: 20090730, end: 20090812
  5. LOXONIN [Concomitant]
     Indication: CANCER PAIN
     Dosage: 60 MG, 3/D
     Route: 048
     Dates: start: 20081021, end: 20090807
  6. LOXONIN [Concomitant]
     Dosage: 60 MG, 3/D
     Route: 048
     Dates: start: 20090815, end: 20090822
  7. OXINORM [Concomitant]
     Indication: CANCER PAIN
     Dosage: 5 MG, AS NEEDED
     Route: 048
     Dates: start: 20090205, end: 20090822
  8. MAGNESIUM OXIDE [Concomitant]
     Indication: CONSTIPATION
     Dosage: 3 G, DAILY (1/D)
     Route: 048
     Dates: start: 20090807, end: 20090822
  9. PRIMPERAN /00041901/ [Concomitant]
     Indication: PROPHYLAXIS OF NAUSEA AND VOMITING
     Dosage: 5 MG, 3/D
     Route: 048
     Dates: start: 20090807, end: 20090822
  10. DUROTEP [Concomitant]
     Indication: CANCER PAIN
     Dosage: 10.5 MG, DAILY (1/D)
     Route: 062
     Dates: start: 20090808, end: 20090825

REACTIONS (6)
  - CEREBRAL INFARCTION [None]
  - DIARRHOEA [None]
  - INTERSTITIAL LUNG DISEASE [None]
  - NAUSEA [None]
  - PLATELET COUNT DECREASED [None]
  - VOMITING [None]
